FAERS Safety Report 5745427-0 (Version None)
Quarter: 2008Q2

REPORT INFORMATION
  Report Type: 
  Country: None (occurrence: None)
  Receive Date: 20080521
  Receipt Date: 20080509
  Transmission Date: 20081010
  Serious: Yes (Death)
  Sender: FDA-Public Use
  Company Number: FI-AVENTIS-200814313GDDC

PATIENT
  Age: 66 Year
  Sex: Female

DRUGS (7)
  1. TAXOTERE [Suspect]
     Indication: GASTRIC CANCER
     Route: 041
     Dates: start: 20080305, end: 20080305
  2. XELODA [Suspect]
     Indication: GASTRIC CANCER
     Dates: start: 20080305
  3. TOLVON [Concomitant]
     Dosage: DOSE: 1 1/2
  4. SERTRALIN [Concomitant]
  5. LORAZEPAM [Concomitant]
  6. BISOPROLOL FUMARATE [Concomitant]
  7. ESOMEPRAZOLE MAGNESIUM [Concomitant]

REACTIONS (1)
  - SUDDEN DEATH [None]
